FAERS Safety Report 7329776-0 (Version None)
Quarter: 2011Q1

REPORT INFORMATION
  Report Type: 
  Country: None (occurrence: None)
  Receive Date: 20110223
  Receipt Date: 20110209
  Transmission Date: 20110831
  Serious: Yes (Hospitalization)
  Sender: FDA-Public Use
  Company Number: 2010EN000255

PATIENT
  Age: 45 Year
  Sex: Male

DRUGS (8)
  1. DOXORUBICIN HCL [Suspect]
     Indication: ACUTE LYMPHOCYTIC LEUKAEMIA
     Dosage: 73.5 MG; QD; IV
     Route: 042
     Dates: start: 20100723, end: 20100724
  2. METHYLPREDNISOLONE [Suspect]
     Indication: ACUTE LYMPHOCYTIC LEUKAEMIA
     Dosage: 32 MG/M2; QD; IV
     Route: 042
     Dates: start: 20100723, end: 20100725
  3. ONCASPAR [Suspect]
     Indication: ACUTE LYMPHOCYTIC LEUKAEMIA
     Dosage: 6125 IU;X1; IV
     Route: 042
     Dates: start: 20100726, end: 20100726
  4. CYTARABINE [Suspect]
     Indication: ACUTE LYMPHOCYTIC LEUKAEMIA
     Dosage: 50 MG;X1; IV
     Route: 042
     Dates: start: 20100720, end: 20100722
  5. VINCRISTINE [Suspect]
     Indication: ACUTE LYMPHOCYTIC LEUKAEMIA
     Dosage: 2 MG; QW; IV
     Route: 042
     Dates: start: 20100723, end: 20100806
  6. PREDNISONE TAB [Suspect]
     Indication: ACUTE LYMPHOCYTIC LEUKAEMIA
     Dosage: 40 MG/M2;QD;PO
     Route: 048
     Dates: start: 20100725, end: 20100820
  7. METHOTREXATE [Suspect]
     Indication: ACUTE LYMPHOCYTIC LEUKAEMIA
     Dosage: 98 MG;X1; IV, 12 MG;X1; INTH
     Route: 055
     Dates: start: 20100820, end: 20100820
  8. METHOTREXATE [Suspect]
     Indication: ACUTE LYMPHOCYTIC LEUKAEMIA
     Dosage: 98 MG;X1; IV, 12 MG;X1; INTH
     Route: 055
     Dates: start: 20100725, end: 20100725

REACTIONS (8)
  - EMPYEMA [None]
  - PNEUMOTHORAX [None]
  - THROMBOSIS [None]
  - APLASIA [None]
  - PULMONARY EMBOLISM [None]
  - MEDICAL DEVICE COMPLICATION [None]
  - VASCULAR ACCESS COMPLICATION [None]
  - PULMONARY INFARCTION [None]
